FAERS Safety Report 5244156-X (Version None)
Quarter: 2007Q1

REPORT INFORMATION
  Report Type: 
  Country: None (occurrence: None)
  Receive Date: 20070222
  Receipt Date: 20070214
  Transmission Date: 20070707
  Serious: Yes (Other)
  Sender: FDA-Public Use
  Company Number: JP-ROCHE-483201

PATIENT
  Sex: Male

DRUGS (1)
  1. ROCEPHIN [Suspect]
     Indication: PANCREATIC PSEUDOCYST
     Dosage: ROUTE REPORTED AS INTRAVENOUS (NOT OTHERWISE SPECIFIED). DRUG REPORTED AS ROCEPHIN 1G BAG.
     Route: 042
     Dates: start: 20070207, end: 20070213

REACTIONS (1)
  - ENTEROCOLITIS HAEMORRHAGIC [None]
